FAERS Safety Report 26175365 (Version 1)
Quarter: 2025Q4

REPORT INFORMATION
  Report Type: Spontaneous
  Country: US (occurrence: US)
  Receive Date: 20251218
  Receipt Date: 20251218
  Transmission Date: 20260118
  Serious: Yes (Other)
  Sender: MALLINCKRODT
  Company Number: US-MALLINCKRODT-MNK202507964

PATIENT
  Sex: Male

DRUGS (4)
  1. NITRIC OXIDE [Suspect]
     Active Substance: NITRIC OXIDE
     Indication: Pulmonary hypertension
     Dosage: UNKNOWN
     Route: 055
  2. PENICILLIN G POTASSIUM [Concomitant]
     Active Substance: PENICILLIN G POTASSIUM
     Indication: Congenital syphilis
     Dosage: UNKNOWN
  3. PENICILLIN G POTASSIUM [Concomitant]
     Active Substance: PENICILLIN G POTASSIUM
  4. URSODIOL [Concomitant]
     Active Substance: URSODIOL
     Dosage: UNKNOWN

REACTIONS (4)
  - Gallbladder enlargement [Unknown]
  - Ascites [Unknown]
  - Hepatomegaly [Unknown]
  - Product use issue [Unknown]
